FAERS Safety Report 19407764 (Version 1)
Quarter: 2021Q2

REPORT INFORMATION
  Report Type: Spontaneous
  Country: IT (occurrence: IT)
  Receive Date: 20210611
  Receipt Date: 20210611
  Transmission Date: 20210717
  Serious: Yes (Other)
  Sender: FDA-Public Use
  Company Number: IT-BAUSCH-BL-2021-019448

PATIENT
  Age: 24 Year
  Sex: Male

DRUGS (6)
  1. AZITHROMYCIN ANHYDROUS. [Suspect]
     Active Substance: AZITHROMYCIN ANHYDROUS
     Indication: ACNE
     Route: 048
  2. BENZOYL PEROXIDE. [Suspect]
     Active Substance: BENZOYL PEROXIDE
     Indication: ACNE
     Route: 061
  3. ADAPALENE. [Suspect]
     Active Substance: ADAPALENE
     Indication: ACNE
     Route: 061
  4. MINOCYCLINE [Suspect]
     Active Substance: MINOCYCLINE HYDROCHLORIDE
     Indication: ACNE
     Route: 048
  5. ERYTHROMYCIN. [Suspect]
     Active Substance: ERYTHROMYCIN
     Indication: ACNE
     Route: 061
  6. ISOTRETINOIN. [Concomitant]
     Active Substance: ISOTRETINOIN
     Indication: ACNE

REACTIONS (3)
  - Folliculitis [Unknown]
  - Therapy partial responder [Unknown]
  - Enterobacter infection [Unknown]
